FAERS Safety Report 5655324 (Version 5)
Quarter: 2016Q1

REPORT INFORMATION
  Report Type: Spontaneous
  Country: JP (occurrence: JP)
  Receive Date: 20041029
  Receipt Date: 20160211
  Transmission Date: 20160526
  Serious: Yes (Other)
  Sender: FDA-Public Use
  Company Number: JP-BRISTOL-MYERS SQUIBB COMPANY-12735569

PATIENT
  Age: 33 Year
  Sex: Female

DRUGS (3)
  1. BRIPLATIN [Suspect]
     Active Substance: CISPLATIN
     Indication: OVARIAN GERM CELL ENDODERMAL SINUS TUMOUR STAGE I
     Dosage: 75 MG/M2, UNK
     Route: 042
  2. VINBLASTINE [Suspect]
     Active Substance: VINBLASTINE
     Indication: OVARIAN GERM CELL ENDODERMAL SINUS TUMOUR STAGE I
     Dosage: .1 MG/KG, UNK
     Route: 042
  3. BLEOMYCIN SULFATE [Suspect]
     Active Substance: BLEOMYCIN SULFATE
     Indication: OVARIAN GERM CELL ENDODERMAL SINUS TUMOUR STAGE I
     Dosage: 15 MG, UNK
     Route: 030

REACTIONS (10)
  - Coagulopathy [Unknown]
  - Caesarean section [Unknown]
  - Hepatic neoplasm [Unknown]
  - Hypertension [Unknown]
  - Fibrinolysis [Unknown]
  - Oligohydramnios [Unknown]
  - Peritoneal neoplasm [Unknown]
  - Pregnancy [Recovered/Resolved]
  - Renal impairment [Unknown]
  - Thrombocytopenia [Unknown]
